FAERS Safety Report 9052595 (Version 1)
Quarter: 2013Q1

REPORT INFORMATION
  Report Type: Spontaneous
  Country: GB (occurrence: GB)
  Receive Date: 20130207
  Receipt Date: 20130207
  Transmission Date: 20140127
  Serious: Yes (Life-Threatening, Hospitalization)
  Sender: FDA-Public Use
  Company Number: GB-MYLANLABS-2013S1001961

PATIENT
  Age: 76 Year
  Sex: Female

DRUGS (8)
  1. QUETIAPINE [Suspect]
     Indication: ANXIETY
     Route: 048
     Dates: start: 20111128, end: 20121221
  2. ASPIRIN [Concomitant]
     Indication: PRODUCT USED FOR UNKNOWN INDICATION
  3. BISOPROLOL [Concomitant]
     Indication: PRODUCT USED FOR UNKNOWN INDICATION
  4. PERINDOPRIL [Concomitant]
     Indication: PRODUCT USED FOR UNKNOWN INDICATION
  5. SERTRALINE [Concomitant]
     Indication: DEPRESSION
  6. WARFARIN [Concomitant]
     Indication: PRODUCT USED FOR UNKNOWN INDICATION
  7. ZOPICLONE [Concomitant]
     Indication: PRODUCT USED FOR UNKNOWN INDICATION
  8. SIMVASTATIN [Concomitant]
     Indication: PRODUCT USED FOR UNKNOWN INDICATION

REACTIONS (9)
  - Cardiac arrest [Unknown]
  - Hypocalcaemia [Unknown]
  - Electrocardiogram QT prolonged [Recovered/Resolved]
  - Dyspnoea [Unknown]
  - Sick sinus syndrome [Unknown]
  - Fatigue [Unknown]
  - Torsade de pointes [Unknown]
  - Malaise [Unknown]
  - Ventricular tachycardia [Unknown]
